FAERS Safety Report 15272222 (Version 2)
Quarter: 2018Q3

REPORT INFORMATION
  Report Type: Spontaneous
  Country: JP (occurrence: JP)
  Receive Date: 20180813
  Receipt Date: 20180830
  Transmission Date: 20181010
  Serious: Yes (Death, Hospitalization, Other)
  Sender: FDA-Public Use
  Company Number: JP-PFIZER INC-2018166305

PATIENT
  Age: 69 Year
  Sex: Female
  Weight: 53 kg

DRUGS (11)
  1. LETROZOLE. [Concomitant]
     Active Substance: LETROZOLE
     Dosage: 2.5 MG, 1X/DAY
     Route: 048
     Dates: start: 20180306
  2. DAIPHEN [Concomitant]
     Active Substance: SULFAMETHOXAZOLE\TRIMETHOPRIM
     Dosage: 0.5 (UNKNOWN UNIT), ALTERNATE DAY
     Route: 048
     Dates: start: 20170501
  3. PROTECADIN [Concomitant]
     Active Substance: LAFUTIDINE
     Dosage: 10 MG, 1X/DAY
     Route: 048
     Dates: start: 20180122
  4. DENOTAS [Concomitant]
     Active Substance: CALCIUM CARBONATE\CHOLECALCIFEROL\MAGNESIUM CARBONATE
     Dosage: UNK, 1X/DAY
     Route: 048
     Dates: start: 20150113
  5. IBRANCE [Suspect]
     Active Substance: PALBOCICLIB
     Indication: BREAST CANCER
     Dosage: 125 MG, 1X/DAY
     Route: 048
     Dates: start: 20180308, end: 20180326
  6. LANSOPRAZOLE. [Concomitant]
     Active Substance: LANSOPRAZOLE
     Dosage: 30 MG, 1X/DAY
     Route: 048
     Dates: start: 20170420
  7. GABAPEN [Concomitant]
     Active Substance: GABAPENTIN
     Dosage: 200 MG, 1X/DAY
     Route: 048
     Dates: start: 20180122
  8. FENTOS [Concomitant]
     Active Substance: FENTANYL
     Dosage: 2 MG, 1X/DAY
     Route: 062
     Dates: start: 20170424
  9. AMITIZA [Concomitant]
     Active Substance: LUBIPROSTONE
     Dosage: 24 UG, 2X/DAY
     Route: 048
     Dates: start: 20160518
  10. MAGMITT [Concomitant]
     Active Substance: MAGNESIUM OXIDE
     Dosage: 330 MG, 3X/DAY
     Route: 048
     Dates: start: 20160323
  11. RINDERON V [Concomitant]
     Active Substance: BETAMETHASONE VALERATE
     Dosage: 0.5 MG, 2X/DAY
     Route: 048
     Dates: start: 20170424

REACTIONS (8)
  - Disorientation [Unknown]
  - Febrile neutropenia [Recovered/Resolved]
  - Neoplasm progression [Fatal]
  - Neutrophil count decreased [Recovered/Resolved]
  - White blood cell count decreased [Recovered/Resolved]
  - C-reactive protein increased [Unknown]
  - Platelet count decreased [Recovered/Resolved]
  - Pyrexia [Recovered/Resolved]

NARRATIVE: CASE EVENT DATE: 20180326
